FAERS Safety Report 21937342 (Version 1)
Quarter: 2023Q1

REPORT INFORMATION
  Report Type: Spontaneous
  Country: US (occurrence: None)
  Receive Date: 20230131
  Receipt Date: 20230131
  Transmission Date: 20230417
  Serious: Yes (Other)
  Sender: FDA-Public Use
  Company Number: None

PATIENT
  Sex: Female

DRUGS (21)
  1. ENBREL [Suspect]
     Active Substance: ETANERCEPT
     Indication: Rheumatoid arthritis
     Route: 058
     Dates: start: 20190820
  2. ALBUTEROL [Concomitant]
     Active Substance: ALBUTEROL
  3. AZITHROMYCIN [Concomitant]
     Active Substance: AZITHROMYCIN
  4. CLARITHROMYC [Concomitant]
  5. CLOTRIMAZOLE [Concomitant]
  6. DULOXETINE [Concomitant]
     Active Substance: DULOXETINE
  7. ESTRADIOL [Concomitant]
     Active Substance: ESTRADIOL
  8. FLUTIC/SALME [Concomitant]
  9. FOLIC ACID [Concomitant]
     Active Substance: FOLIC ACID
  10. HYDROXYCHLOROQUINE [Concomitant]
     Active Substance: HYDROXYCHLOROQUINE
  11. IBUPROFEN [Concomitant]
     Active Substance: IBUPROFEN
  12. LEUCOVOR CA [Concomitant]
  13. LISINOPRIL [Concomitant]
     Active Substance: LISINOPRIL
  14. METHADONE [Concomitant]
     Active Substance: METHADONE HYDROCHLORIDE
  15. METHOCARBAMOL [Concomitant]
     Active Substance: METHOCARBAMOL
  16. MONTELUKAST [Concomitant]
  17. ONDANSETRON [Concomitant]
     Active Substance: ONDANSETRON
  18. OXYCODONE AND ACETAMINOPHEN [Concomitant]
     Active Substance: ACETAMINOPHEN\OXYCODONE HYDROCHLORIDE
  19. PREDNISONE [Concomitant]
     Active Substance: PREDNISONE
  20. RASUVO [Concomitant]
  21. ZOLPIDEM [Concomitant]

REACTIONS (8)
  - Rheumatoid arthritis [None]
  - Loss of personal independence in daily activities [None]
  - Fatigue [None]
  - Alopecia [None]
  - Alopecia [None]
  - Upper respiratory tract infection [None]
  - Nasal congestion [None]
  - Intentional dose omission [None]
